FAERS Safety Report 7815774-7 (Version None)
Quarter: 2011Q4

REPORT INFORMATION
  Report Type: 
  Country: None (occurrence: None)
  Receive Date: 20111014
  Receipt Date: 20111005
  Transmission Date: 20120403
  Serious: Yes (Death)
  Sender: FDA-Public Use
  Company Number: JP-AMGEN-JPNSP2011053132

PATIENT
  Age: 75 Year
  Sex: Female

DRUGS (4)
  1. SOLYUGEN G TEISAN [Concomitant]
     Route: 041
  2. ROMIPLATE [Suspect]
     Indication: HEPATIC CIRRHOSIS
     Route: 058
  3. NOVOLIN R [Concomitant]
     Dosage: UNCERTAINTY
     Route: 065
  4. AMINOLEBAN                         /01982601/ [Concomitant]
     Route: 041

REACTIONS (1)
  - DEATH [None]
